FAERS Safety Report 4398823-0 (Version None)
Quarter: 2004Q3

REPORT INFORMATION
  Report Type: 
  Country: None (occurrence: None)
  Receive Date: 20040712
  Receipt Date: 20040618
  Transmission Date: 20050211
  Serious: Yes (Hospitalization)
  Sender: FDA-Public Use
  Company Number: USA040670454

PATIENT
  Age: 81 Year
  Sex: Female
  Weight: 44 kg

DRUGS (8)
  1. FORTEO [Suspect]
     Indication: OSTEOPOROSIS
     Dates: start: 20031001
  2. CALCIUM [Concomitant]
  3. LOPID [Concomitant]
  4. ASPIRIN [Concomitant]
  5. VITAMIN A [Concomitant]
  6. VITAMIN C [Concomitant]
  7. UNSPECIFIED DIURETIC [Concomitant]
  8. IRON SUPPLEMENT [Concomitant]

REACTIONS (5)
  - ASTHENIA [None]
  - BACTERIAL INFECTION [None]
  - PHARMACEUTICAL PRODUCT COMPLAINT [None]
  - PYREXIA [None]
  - VIRAL INFECTION [None]
